FAERS Safety Report 12936716 (Version 1)
Quarter: 2016Q4

REPORT INFORMATION
  Report Type: Spontaneous
  Country: FR (occurrence: FR)
  Receive Date: 20161114
  Receipt Date: 20161114
  Transmission Date: 20170207
  Serious: Yes (Hospitalization)
  Sender: FDA-Public Use
  Company Number: FR-ASTRAZENECA-2016SF17688

PATIENT
  Age: 56 Year
  Sex: Male

DRUGS (6)
  1. ADALAT [Suspect]
     Active Substance: NIFEDIPINE
     Indication: RAYNAUD^S PHENOMENON
     Route: 048
     Dates: start: 20160530, end: 20160718
  2. MELOXICAM. [Suspect]
     Active Substance: MELOXICAM
     Route: 048
  3. GAVISCON [Concomitant]
     Active Substance: ALUMINUM HYDROXIDE\MAGNESIUM CARBONATE
  4. INEXIUM [Suspect]
     Active Substance: ESOMEPRAZOLE
     Indication: SCLERODERMA
     Route: 048
  5. BUDENOSIDE [Concomitant]
     Active Substance: BUDESONIDE
  6. DAFALGAN [Concomitant]
     Active Substance: ACETAMINOPHEN

REACTIONS (1)
  - Drug reaction with eosinophilia and systemic symptoms [Recovering/Resolving]

NARRATIVE: CASE EVENT DATE: 20160716
